FAERS Safety Report 20198414 (Version 1)
Quarter: 2021Q4

REPORT INFORMATION
  Report Type: Spontaneous
  Country: US (occurrence: None)
  Receive Date: 20211216
  Receipt Date: 20211216
  Transmission Date: 20220303
  Serious: Yes (Death)
  Sender: FDA-Public Use
  Company Number: None

PATIENT
  Age: 71 Year
  Sex: Female
  Weight: 58.05 kg

DRUGS (5)
  1. PANZYGA [Suspect]
     Active Substance: HUMAN IMMUNOGLOBULIN G
     Indication: Chronic inflammatory demyelinating polyradiculoneuropathy
     Dosage: FREQUENCY : MONTHLY;?
     Route: 042
     Dates: start: 20211213, end: 20211213
  2. Advair Diskus 500-50mcg/dose [Concomitant]
  3. Albuterol 2.5mg/3mL [Concomitant]
  4. Incruse Ellipta 62.5 mcg/inh [Concomitant]
  5. Vitamin D3 125mcg (5000U) [Concomitant]

REACTIONS (1)
  - Death [None]

NARRATIVE: CASE EVENT DATE: 20211214
